FAERS Safety Report 4748716-1 (Version None)
Quarter: 2005Q3

REPORT INFORMATION
  Report Type: 
  Country: None (occurrence: None)
  Receive Date: 20050819
  Receipt Date: 20050809
  Transmission Date: 20060218
  Serious: Yes (Hospitalization, Other)
  Sender: FDA-Public Use
  Company Number: BE-BRISTOL-MYERS SQUIBB COMPANY-13067632

PATIENT
  Sex: Male

DRUGS (1)
  1. IRBESARTAN [Suspect]
     Route: 048

REACTIONS (2)
  - CONFUSIONAL STATE [None]
  - OVERDOSE [None]
